FAERS Safety Report 4438470-5 (Version None)
Quarter: 2004Q3

REPORT INFORMATION
  Report Type: 
  Country: None (occurrence: None)
  Receive Date: 20040728
  Receipt Date: 20040615
  Transmission Date: 20050211
  Serious: No
  Sender: FDA-Public Use
  Company Number: USA040362824

PATIENT
  Age: 6 Year
  Sex: Male
  Weight: 20 kg

DRUGS (1)
  1. STRATTERA [Suspect]
     Indication: ATTENTION DEFICIT/HYPERACTIVITY DISORDER
     Dosage: 18 MG DAY
     Dates: start: 20040320

REACTIONS (9)
  - CHILLS [None]
  - CYANOSIS [None]
  - DECREASED APPETITE [None]
  - DRY MOUTH [None]
  - FEELING ABNORMAL [None]
  - FEELING COLD [None]
  - MYDRIASIS [None]
  - SOMNOLENCE [None]
  - WEIGHT DECREASED [None]
